FAERS Safety Report 7209781-5 (Version None)
Quarter: 2011Q1

REPORT INFORMATION
  Report Type: 
  Country: None (occurrence: None)
  Receive Date: 20110104
  Receipt Date: 20101231
  Transmission Date: 20110831
  Serious: Yes (Death)
  Sender: FDA-Public Use
  Company Number: US-ASTRAZENECA-2011SE00103

PATIENT
  Age: 75 Year
  Sex: Male

DRUGS (3)
  1. ACETAMINOPHEN/DIPHENHYDRAMINE [Suspect]
     Route: 048
  2. SERTRALINE [Suspect]
     Route: 048
  3. ATENOLOL [Suspect]
     Route: 048

REACTIONS (2)
  - TOXICITY TO VARIOUS AGENTS [None]
  - COMPLETED SUICIDE [None]
